FAERS Safety Report 7008199-8 (Version None)
Quarter: 2010Q3

REPORT INFORMATION
  Report Type: 
  Country: None (occurrence: None)
  Receive Date: 20100922
  Receipt Date: 20100908
  Transmission Date: 20110219
  Serious: Yes (Other)
  Sender: FDA-Public Use
  Company Number: US-JNJCH-2008009978

PATIENT
  Sex: Male

DRUGS (3)
  1. CELEBREX [Suspect]
     Indication: BACK PAIN
     Dosage: UNK
     Route: 048
  2. IBUPROFEN [Suspect]
     Indication: BACK PAIN
     Dosage: UNK
     Route: 048
  3. ALEVE (CAPLET) [Concomitant]
     Indication: BACK PAIN
     Dosage: UNSPECIFIED
     Route: 048

REACTIONS (4)
  - DRUG INEFFECTIVE [None]
  - LIMB INJURY [None]
  - SCIATICA [None]
  - SEDATION [None]
